FAERS Safety Report 9605036 (Version 4)
Quarter: 2014Q1

REPORT INFORMATION
  Report Type: Spontaneous
  Country: US (occurrence: US)
  Receive Date: 20131008
  Receipt Date: 20140127
  Transmission Date: 20141002
  Serious: Yes (Death, Other)
  Sender: FDA-Public Use
  Company Number: US-UCBSA-099575

PATIENT
  Age: 24 Year
  Sex: Female
  Weight: 85.27 kg

DRUGS (3)
  1. VIMPAT [Suspect]
     Indication: CONVULSION
     Dosage: DOSE: 250 MG QAM AND 300 MG QPM
     Route: 048
     Dates: start: 2011
  2. LAMICTAL XR [Suspect]
     Indication: CONVULSION
     Dosage: 200 MG ONCE IN AM AND 300 MG ONCE IN PM,  TABLET EXTENDED RELEASE
     Route: 048
     Dates: start: 2012
  3. NONE [Concomitant]

REACTIONS (8)
  - Cardiac arrest [Fatal]
  - Grand mal convulsion [Fatal]
  - Drug ineffective [Fatal]
  - Unresponsive to stimuli [Unknown]
  - Aura [Unknown]
  - Loss of consciousness [Unknown]
  - Weight increased [Recovered/Resolved]
  - Overdose [Unknown]
